FAERS Safety Report 8491299-3 (Version None)
Quarter: 2012Q3

REPORT INFORMATION
  Report Type: 
  Country: None (occurrence: None)
  Receive Date: 20120706
  Receipt Date: 20120630
  Transmission Date: 20120928
  Serious: Yes (Life-Threatening, Hospitalization)
  Sender: FDA-Public Use
  Company Number: ES-ASTELLAS-2012EU004772

PATIENT
  Age: 4 Year
  Sex: Male

DRUGS (2)
  1. EVEROLIMUS [Concomitant]
     Indication: HEART TRANSPLANT
     Dosage: UNK
     Route: 065
  2. TACROLIMUS [Suspect]
     Indication: HEART TRANSPLANT
     Dosage: UNK
     Route: 065

REACTIONS (3)
  - PSEUDOMEMBRANOUS COLITIS [None]
  - CLOSTRIDIUM DIFFICILE COLITIS [None]
  - MEGACOLON [None]
